FAERS Safety Report 7329060-5 (Version None)
Quarter: 2011Q1

REPORT INFORMATION
  Report Type: 
  Country: None (occurrence: None)
  Receive Date: 20110225
  Receipt Date: 20110225
  Transmission Date: 20110831
  Serious: Yes (Hospitalization, Other)
  Sender: FDA-Public Use
  Company Number: None

PATIENT
  Age: 67 Year

DRUGS (1)
  1. VENOFER [Suspect]
     Dates: start: 20100930, end: 20100930

REACTIONS (12)
  - PURULENCE [None]
  - PUNCTURE SITE REACTION [None]
  - INFUSION SITE PHLEBITIS [None]
  - INFUSION SITE PAIN [None]
  - THROMBOPHLEBITIS SUPERFICIAL [None]
  - SKIN DISCOLOURATION [None]
  - INFUSION SITE EXTRAVASATION [None]
  - INFUSION SITE HAEMORRHAGE [None]
  - INFUSION SITE ERYTHEMA [None]
  - KLEBSIELLA TEST POSITIVE [None]
  - ANTIBIOTIC RESISTANT STAPHYLOCOCCUS TEST POSITIVE [None]
  - OEDEMA PERIPHERAL [None]
